FAERS Safety Report 23910241 (Version 1)
Quarter: 2024Q2

REPORT INFORMATION
  Report Type: Spontaneous
  Country: CA (occurrence: CA)
  Receive Date: 20240528
  Receipt Date: 20240528
  Transmission Date: 20240722
  Serious: Yes (Other)
  Sender: FDA-Public Use
  Company Number: CA-FreseniusKabi-FK202408063

PATIENT
  Age: 67 Year

DRUGS (2)
  1. SODIUM CHLORIDE [Suspect]
     Active Substance: SODIUM CHLORIDE
     Indication: Product used for unknown indication
     Dosage: FORM OF ADMIN: NOT SPECIFIED
  2. GADOBUTROL [Suspect]
     Active Substance: GADOBUTROL
     Indication: Product used for unknown indication
     Dosage: FOA: SOLUTION INTRAVENOUS

REACTIONS (2)
  - Drug eruption [Not Recovered/Not Resolved]
  - Incorrect route of product administration [Not Recovered/Not Resolved]
